FAERS Safety Report 8029749-9 (Version None)
Quarter: 2012Q1

REPORT INFORMATION
  Report Type: 
  Country: None (occurrence: None)
  Receive Date: 20120109
  Receipt Date: 20120102
  Transmission Date: 20120608
  Serious: Yes (Hospitalization)
  Sender: FDA-Public Use
  Company Number: CA-JNJFOC-20120100987

PATIENT
  Sex: Male
  Weight: 61 kg

DRUGS (4)
  1. REMICADE [Suspect]
     Indication: CROHN'S DISEASE
     Dosage: 100MG
     Route: 042
     Dates: start: 19890101
  2. FOLIC ACID [Concomitant]
     Route: 048
  3. METHOTREXATE [Concomitant]
     Route: 048
  4. METOCLOPRAMIDE [Concomitant]
     Route: 048

REACTIONS (1)
  - GASTROINTESTINAL INFLAMMATION [None]
